FAERS Safety Report 10913887 (Version 2)
Quarter: 2015Q4

REPORT INFORMATION
  Report Type: Spontaneous
  Country: US (occurrence: US)
  Receive Date: 20150313
  Receipt Date: 20151223
  Transmission Date: 20160304
  Serious: Yes (Other)
  Sender: FDA-Public Use
  Company Number: US-ELI_LILLY_AND_COMPANY-US201503000505

PATIENT
  Sex: Male

DRUGS (3)
  1. CYMBALTA [Suspect]
     Active Substance: DULOXETINE HYDROCHLORIDE
     Indication: DEPRESSION
  2. CYMBALTA [Suspect]
     Active Substance: DULOXETINE HYDROCHLORIDE
     Indication: PAIN
  3. CYMBALTA [Suspect]
     Active Substance: DULOXETINE HYDROCHLORIDE
     Indication: ANXIETY
     Dosage: UNK, UNKNOWN
     Route: 065
     Dates: start: 2007, end: 201303

REACTIONS (23)
  - Pain [Unknown]
  - Hallucination [Unknown]
  - Seizure [Unknown]
  - Aggression [Unknown]
  - Agitation [Unknown]
  - Suicidal ideation [Unknown]
  - Headache [Unknown]
  - Vertigo [Unknown]
  - Paraesthesia [Unknown]
  - Sleep disorder [Unknown]
  - Sensory disturbance [Unknown]
  - Drug withdrawal syndrome [Unknown]
  - Depression [Unknown]
  - Confusional state [Unknown]
  - Memory impairment [Unknown]
  - Excessive eye blinking [Unknown]
  - Nightmare [Unknown]
  - Disturbance in attention [Unknown]
  - Tremor [Unknown]
  - Fatigue [Unknown]
  - Irritability [Unknown]
  - Disorientation [Unknown]
  - Restless legs syndrome [Unknown]
